FAERS Safety Report 19211446 (Version 1)
Quarter: 2021Q2

REPORT INFORMATION
  Report Type: Spontaneous
  Country: US (occurrence: US)
  Receive Date: 20210504
  Receipt Date: 20210504
  Transmission Date: 20210717
  Serious: Yes (Other)
  Sender: FDA-Public Use
  Company Number: None

PATIENT
  Age: 43 Year
  Sex: Female
  Weight: 67.5 kg

DRUGS (1)
  1. NP THYROID [Suspect]
     Active Substance: LEVOTHYROXINE\LIOTHYRONINE
     Indication: HYPOTHYROIDISM
     Dosage: ?          QUANTITY:30 CAPSULE(S);?
     Route: 048

REACTIONS (7)
  - Depression [None]
  - Suicidal ideation [None]
  - Feeling of despair [None]
  - Heart rate decreased [None]
  - Diabetes mellitus inadequate control [None]
  - Weight increased [None]
  - Blood glucose increased [None]

NARRATIVE: CASE EVENT DATE: 20190901
